FAERS Safety Report 6878010-4 (Version None)
Quarter: 2010Q3

REPORT INFORMATION
  Report Type: 
  Country: None (occurrence: None)
  Receive Date: 20100727
  Receipt Date: 20100713
  Transmission Date: 20110219
  Serious: Yes (Hospitalization)
  Sender: FDA-Public Use
  Company Number: US-ELI_LILLY_AND_COMPANY-US201007002954

PATIENT
  Sex: Female

DRUGS (9)
  1. FORTEO [Suspect]
     Dosage: UNK, UNKNOWN
     Route: 065
  2. COUMADIN [Concomitant]
     Dosage: 2.5 MG, UNK
  3. PROPRANOLOL [Concomitant]
     Dosage: 40 MG, UNK
  4. DIGITEK [Concomitant]
     Dosage: 0.125 MG, UNK
  5. GLUCOTROL [Concomitant]
     Dosage: 5 MG, UNK
  6. LIPITOR [Concomitant]
     Dosage: 80 MG, UNK
  7. NORCO [Concomitant]
     Dosage: 10-325 MG
  8. VITAMIN D [Concomitant]
  9. MULTI-VITAMIN [Concomitant]

REACTIONS (2)
  - COGNITIVE DISORDER [None]
  - HAEMATURIA [None]
